FAERS Safety Report 22865789 (Version 14)
Quarter: 2024Q3

REPORT INFORMATION
  Report Type: Report from Study
  Country: US (occurrence: US)
  Receive Date: 20230825
  Receipt Date: 20240705
  Transmission Date: 20241016
  Serious: Yes (Other)
  Sender: ACADIA PHARMACEUTICALS
  Company Number: US-ACADIA PHARMACEUTICALS INC.-ACA-2023-TRF-003255

PATIENT
  Age: 34 Year
  Sex: Female

DRUGS (35)
  1. DAYBUE [Suspect]
     Active Substance: TROFINETIDE
     Indication: Rett syndrome
     Dosage: 20 MILLILITER, BID VIA G-TUBE
     Dates: start: 20230727
  2. DAYBUE [Suspect]
     Active Substance: TROFINETIDE
     Dosage: 30 MILLILITER VIA G-TUBE
  3. DAYBUE [Suspect]
     Active Substance: TROFINETIDE
     Dosage: 40 MILLILITER, BID VIA G TUBE
     Dates: start: 20230812
  4. DAYBUE [Suspect]
     Active Substance: TROFINETIDE
     Dosage: 50 MILLILITER, BID VIA G TUBE
  5. DAYBUE [Suspect]
     Active Substance: TROFINETIDE
     Dosage: 40 MILLILITER, BID VIA G TUBE
     Dates: start: 20231013
  6. DAYBUE [Suspect]
     Active Substance: TROFINETIDE
     Dosage: 20 MILLILITER, BID VIA G TUBE
  7. DAYBUE [Suspect]
     Active Substance: TROFINETIDE
     Dosage: 50 MILLILITER, BID VIA G TUBE
  8. DAYBUE [Suspect]
     Active Substance: TROFINETIDE
     Dosage: 20MILLILITER, BID VIA G TUBE
     Dates: start: 202310
  9. DAYBUE [Suspect]
     Active Substance: TROFINETIDE
     Dosage: 30 MILLILITER, BID VIA G TUBE
  10. DAYBUE [Suspect]
     Active Substance: TROFINETIDE
     Dosage: 20 MILLILITER, BID VIA G TUBE
  11. DAYBUE [Suspect]
     Active Substance: TROFINETIDE
     Dosage: 22 MILLILITER, BID VIA G TUBE
     Dates: start: 20231116
  12. DAYBUE [Suspect]
     Active Substance: TROFINETIDE
     Dosage: 50 MILLILITER, BID VIA G TUBE
  13. DAYBUE [Suspect]
     Active Substance: TROFINETIDE
     Dosage: 24 MILLILITER VIA G TUBE
  14. DAYBUE [Suspect]
     Active Substance: TROFINETIDE
     Dosage: 26 MILLILITER VIA G TUBE
  15. DAYBUE [Suspect]
     Active Substance: TROFINETIDE
     Dosage: 28 MILLILITER, BID VIA G TUBE
     Dates: start: 20240122
  16. DAYBUE [Suspect]
     Active Substance: TROFINETIDE
     Dosage: 50 MILLILITER, BID VIA G TUBE
  17. DAYBUE [Suspect]
     Active Substance: TROFINETIDE
     Dosage: 34 MILLILITER, BID VIA G TUBE
  18. DAYBUE [Suspect]
     Active Substance: TROFINETIDE
     Dosage: 35 MILLILITER, BID VIA G TUBE
  19. DAYBUE [Suspect]
     Active Substance: TROFINETIDE
     Dosage: 38 MILLILITER, BID VIA G TUBE
  20. DAYBUE [Suspect]
     Active Substance: TROFINETIDE
     Dosage: 40 MILLILITER, BID VIA G TUBE
     Dates: start: 20240414
  21. DAYBUE [Suspect]
     Active Substance: TROFINETIDE
     Dosage: 42 MILLILITER, BID VIA G TUBE
  22. DAYBUE [Suspect]
     Active Substance: TROFINETIDE
     Dosage: 50 MILLILITER, BID VIA G TUBE
  23. DAYBUE [Suspect]
     Active Substance: TROFINETIDE
     Dosage: 46 MILLILITER, BID VIA G TUBE
  24. DAYBUE [Suspect]
     Active Substance: TROFINETIDE
     Dosage: 50 MILLILITER, BID VIA G TUBE
  25. MIRALAX [Suspect]
     Active Substance: POLYETHYLENE GLYCOL 3350
     Dosage: UNK
     Route: 065
  26. CLOBAZAM [Concomitant]
     Active Substance: CLOBAZAM
     Dosage: UNK
     Route: 065
     Dates: end: 20240204
  27. BACLOFEN [Concomitant]
     Active Substance: BACLOFEN
  28. PHENYTOIN [Concomitant]
     Active Substance: PHENYTOIN
  29. NEXIUM [Concomitant]
     Active Substance: ESOMEPRAZOLE MAGNESIUM
  30. BLISOVI 24 FE [Concomitant]
     Active Substance: ETHINYL ESTRADIOL\NORETHINDRONE ACETATE
  31. VITAMIN C [Concomitant]
     Active Substance: ASCORBIC ACID
  32. CALCIUM CARBONATE [Concomitant]
     Active Substance: CALCIUM CARBONATE
     Dosage: ANTACID SUSPENSION
  33. MIRALAX [Concomitant]
     Active Substance: POLYETHYLENE GLYCOL 3350
  34. NADOLOL [Concomitant]
     Active Substance: NADOLOL
  35. complete nutrition plus liquid [Concomitant]

REACTIONS (48)
  - Seizure [Recovering/Resolving]
  - Seizure [Not Recovered/Not Resolved]
  - Seizure [Not Recovered/Not Resolved]
  - Seizure [Not Recovered/Not Resolved]
  - Seizure [Not Recovered/Not Resolved]
  - Seizure [Not Recovered/Not Resolved]
  - Drooling [Not Recovered/Not Resolved]
  - Breath holding [Not Recovered/Not Resolved]
  - Middle insomnia [Not Recovered/Not Resolved]
  - Bruxism [Not Recovered/Not Resolved]
  - Faeces soft [Not Recovered/Not Resolved]
  - Faeces soft [Not Recovered/Not Resolved]
  - Somnolence [Not Recovered/Not Resolved]
  - Gait disturbance [Not Recovered/Not Resolved]
  - Dysstasia [Not Recovered/Not Resolved]
  - Drooling [Not Recovered/Not Resolved]
  - Drug ineffective [Not Recovered/Not Resolved]
  - Illness [Not Recovered/Not Resolved]
  - Heavy menstrual bleeding [Not Recovered/Not Resolved]
  - Intermenstrual bleeding [Not Recovered/Not Resolved]
  - Drug ineffective [Not Recovered/Not Resolved]
  - Constipation [Not Recovered/Not Resolved]
  - Bruxism [Not Recovered/Not Resolved]
  - Underdose [Not Recovered/Not Resolved]
  - Insomnia [Not Recovered/Not Resolved]
  - Crying [Not Recovered/Not Resolved]
  - Constipation [Not Recovered/Not Resolved]
  - Surgery [Unknown]
  - Bruxism [Not Recovered/Not Resolved]
  - Physiotherapy [Not Recovered/Not Resolved]
  - Ill-defined disorder [Not Recovered/Not Resolved]
  - Restlessness [Not Recovered/Not Resolved]
  - Ill-defined disorder [Not Recovered/Not Resolved]
  - Pain [Not Recovered/Not Resolved]
  - Gait disturbance [Not Recovered/Not Resolved]
  - Breath holding [Unknown]
  - Bruxism [Not Recovered/Not Resolved]
  - Insomnia [Not Recovered/Not Resolved]
  - Agitation [Not Recovered/Not Resolved]
  - Breath holding [Not Recovered/Not Resolved]
  - Faeces soft [Not Recovered/Not Resolved]
  - Diarrhoea [Not Recovered/Not Resolved]
  - Diarrhoea [Not Recovered/Not Resolved]
  - Diarrhoea [Not Recovered/Not Resolved]
  - Diarrhoea [Recovered/Resolved]
  - Diarrhoea [Not Recovered/Not Resolved]
  - Diarrhoea [Recovering/Resolving]
  - Fatigue [Not Recovered/Not Resolved]

NARRATIVE: CASE EVENT DATE: 20230701
